FAERS Safety Report 9797923 (Version 1)
Quarter: 2014Q1

REPORT INFORMATION
  Report Type: Spontaneous
  Country: FR (occurrence: FR)
  Receive Date: 20140106
  Receipt Date: 20140106
  Transmission Date: 20141002
  Serious: Yes (Life-Threatening, Hospitalization)
  Sender: FDA-Public Use
  Company Number: FR-JNJFOC-20131216391

PATIENT
  Age: 55 Year
  Sex: Female

DRUGS (6)
  1. EPITOMAX [Suspect]
     Indication: PRODUCT USED FOR UNKNOWN INDICATION
     Route: 048
     Dates: start: 2008, end: 20131209
  2. RISPERDAL [Concomitant]
     Route: 048
  3. LIORESAL [Concomitant]
     Route: 065
  4. DANTRIUM [Concomitant]
     Route: 065
  5. SERESTA [Concomitant]
     Route: 065
  6. DIHYDROERGOTAMINE [Concomitant]
     Route: 065

REACTIONS (3)
  - Nephrolithiasis [Recovered/Resolved]
  - Septic shock [Recovered/Resolved]
  - Pyelonephritis acute [Recovered/Resolved]
